FAERS Safety Report 12333285 (Version 1)
Quarter: 2016Q2

REPORT INFORMATION
  Report Type: Spontaneous
  Country: US (occurrence: US)
  Receive Date: 20160504
  Receipt Date: 20160504
  Transmission Date: 20160815
  Serious: No
  Sender: FDA-Public Use
  Company Number: US-ROCHE-1717321

PATIENT
  Sex: Female

DRUGS (6)
  1. DIOVAN [Concomitant]
     Active Substance: VALSARTAN
  2. ACTOS [Concomitant]
     Active Substance: PIOGLITAZONE HYDROCHLORIDE
  3. ESBRIET [Suspect]
     Active Substance: PIRFENIDONE
     Indication: PRODUCT USED FOR UNKNOWN INDICATION
     Dosage: 3 CAPSULE PER  3 TIMES A DAY
     Route: 048
     Dates: start: 20151121
  4. MELOXICAM. [Concomitant]
     Active Substance: MELOXICAM
  5. LORTAB (UNITED STATES) [Concomitant]
  6. ESBRIET [Suspect]
     Active Substance: PIRFENIDONE
     Dosage: 2 CAPSULE PER  3 TIMES A DAY
     Route: 048

REACTIONS (1)
  - Dyspepsia [Unknown]
